FAERS Safety Report 12548013 (Version 2)
Quarter: 2016Q3

REPORT INFORMATION
  Report Type: Spontaneous
  Country: ES (occurrence: ES)
  Receive Date: 20160712
  Receipt Date: 20160721
  Transmission Date: 20161109
  Serious: Yes (Other)
  Sender: FDA-Public Use
  Company Number: ES-BAUSCH-BL-2016-016577

PATIENT
  Age: 41 Year
  Sex: Male

DRUGS (1)
  1. SPIRAXIN [Suspect]
     Active Substance: RIFAXIMIN
     Indication: DIVERTICULITIS
     Route: 048
     Dates: start: 20160613

REACTIONS (6)
  - Chills [Recovered/Resolved]
  - Dizziness [Recovered/Resolved]
  - Body temperature decreased [Recovered/Resolved]
  - Headache [Recovered/Resolved]
  - Asthenia [Recovered/Resolved]
  - Pallor [Recovered/Resolved]
